FAERS Safety Report 10702999 (Version 2)
Quarter: 2015Q1

REPORT INFORMATION
  Report Type: Spontaneous
  Country: US (occurrence: US)
  Receive Date: 20150111
  Receipt Date: 20150324
  Transmission Date: 20150721
  Serious: No
  Sender: FDA-Public Use
  Company Number: US-ASTRAZENECA-2014SE96728

PATIENT
  Age: 60 Year
  Sex: Female
  Weight: 127 kg

DRUGS (5)
  1. LISINOPRIL. [Suspect]
     Active Substance: LISINOPRIL
     Route: 048
     Dates: start: 2006
  2. SYMBICORT [Suspect]
     Active Substance: BUDESONIDE\FORMOTEROL FUMARATE DIHYDRATE
     Indication: CHRONIC OBSTRUCTIVE PULMONARY DISEASE
     Dosage: 2 PUFFS, TWO TIMES A DAY
     Route: 055
     Dates: start: 201411
  3. LANTUS [Concomitant]
     Active Substance: INSULIN GLARGINE
  4. NOVOLIN [Concomitant]
     Active Substance: INSULIN HUMAN
  5. VENTOLIN [Concomitant]
     Active Substance: ALBUTEROL SULFATE

REACTIONS (4)
  - Productive cough [Unknown]
  - Diabetes mellitus [Not Recovered/Not Resolved]
  - Intentional product misuse [Not Recovered/Not Resolved]
  - Dyspnoea [Unknown]

NARRATIVE: CASE EVENT DATE: 2006
